FAERS Safety Report 5813226-7 (Version None)
Quarter: 2008Q3

REPORT INFORMATION
  Report Type: 
  Country: None (occurrence: None)
  Receive Date: 20080717
  Receipt Date: 20080515
  Transmission Date: 20090109
  Serious: No
  Sender: FDA-Public Use
  Company Number: A0728013A

PATIENT
  Age: 35 Year
  Sex: Female

DRUGS (2)
  1. NICORETTE (MINT) [Suspect]
     Dates: start: 20080430
  2. NICOTINE [Suspect]
     Dates: start: 20080426, end: 20080430

REACTIONS (2)
  - INTENTIONAL DRUG MISUSE [None]
  - MENSTRUATION DELAYED [None]
